FAERS Safety Report 15691360 (Version 22)
Quarter: 2020Q1

REPORT INFORMATION
  Report Type: Report from Study
  Country: CO (occurrence: CO)
  Receive Date: 20181205
  Receipt Date: 20200331
  Transmission Date: 20200409
  Serious: Yes (Hospitalization, Other)
  Sender: FDA-Public Use
  Company Number: CO-SAKK-2018SA328552AA

PATIENT
  Age: 42 Year
  Sex: Female
  Weight: 67 kg

DRUGS (1)
  1. ALEMTUZUMAB [Suspect]
     Active Substance: ALEMTUZUMAB
     Indication: MULTIPLE SCLEROSIS
     Dosage: 12 MG, QD
     Route: 041
     Dates: start: 20181121, end: 20181123

REACTIONS (20)
  - Lymphadenitis [Recovered/Resolved]
  - Peripheral swelling [Recovered/Resolved]
  - Red blood cells urine positive [Recovered/Resolved]
  - Lymphocyte count decreased [Recovered/Resolved]
  - Pyrexia [Recovered/Resolved]
  - Fungal test positive [Not Recovered/Not Resolved]
  - Urinary retention [Recovered/Resolved]
  - Jaundice [Recovered/Resolved]
  - Nitrite urine present [Recovered/Resolved]
  - White blood cell count decreased [Not Recovered/Not Resolved]
  - Neutrophil count decreased [Recovered/Resolved]
  - Haemoglobin decreased [Recovered/Resolved]
  - Leukocyturia [Recovered/Resolved]
  - Bacteriuria [Recovered/Resolved]
  - Haematocrit decreased [Recovered/Resolved]
  - Rash [Recovered/Resolved]
  - Chills [Recovered/Resolved]
  - Asthenia [Recovered/Resolved]
  - Asthenia [Unknown]
  - Alanine aminotransferase increased [Recovered/Resolved]

NARRATIVE: CASE EVENT DATE: 20181125
